FAERS Safety Report 20756342 (Version 3)
Quarter: 2022Q2

REPORT INFORMATION
  Report Type: Spontaneous
  Country: US (occurrence: US)
  Receive Date: 20220427
  Receipt Date: 20220623
  Transmission Date: 20220721
  Serious: No
  Sender: FDA-Public Use
  Company Number: US-LUPIN PHARMACEUTICALS INC.-2022-06117

PATIENT
  Age: 81 Year
  Sex: Female

DRUGS (2)
  1. CEFUROXIME AXETIL [Suspect]
     Active Substance: CEFUROXIME AXETIL
     Indication: Chronic sinusitis
     Dosage: 500 MILLIGRAM, BID, 2 TABLETS IN A DAY ONE IN THE MORNING AND ONE IN THE EVENING
     Route: 048
     Dates: start: 20220412, end: 20220413
  2. CEFUROXIME AXETIL [Suspect]
     Active Substance: CEFUROXIME AXETIL
     Dosage: 500 MILLIGRAM, BID, 2 TABLETS IN A DAY ONE IN THE MORNING AND ONE IN THE EVENING
     Route: 048
     Dates: start: 20220417

REACTIONS (5)
  - Product solubility abnormal [Unknown]
  - Product quality issue [Unknown]
  - Product taste abnormal [Unknown]
  - Retching [Unknown]
  - Throat irritation [Unknown]

NARRATIVE: CASE EVENT DATE: 20220401
